FAERS Safety Report 5177718-9 (Version None)
Quarter: 2006Q4

REPORT INFORMATION
  Report Type: 
  Country: None (occurrence: None)
  Receive Date: 20061207
  Receipt Date: 20061128
  Transmission Date: 20070319
  Serious: Yes (Other)
  Sender: FDA-Public Use
  Company Number: 2006146707

PATIENT
  Age: 71 Year
  Sex: Male
  Weight: 87.5442 kg

DRUGS (5)
  1. SOMAVERT [Suspect]
     Indication: ACROMEGALY
     Dosage: 10 MG (10 MG, QD:  EVERY DAY)
     Dates: start: 20060401
  2. PRILOSEC [Concomitant]
  3. LEXAPRO [Concomitant]
  4. ACETYLSALICYLIC ACID                           (ACETYLSALICYCLIC ACID) [Concomitant]
  5. MULTI-VITAMINS [Concomitant]

REACTIONS (2)
  - DYSPNOEA [None]
  - PULMONARY FUNCTION TEST DECREASED [None]
